FAERS Safety Report 12244727 (Version 1)
Quarter: 2016Q2

REPORT INFORMATION
  Report Type: Spontaneous
  Country: US (occurrence: None)
  Receive Date: 20160406
  Receipt Date: 20160406
  Transmission Date: 20160815
  Serious: Yes (Other)
  Sender: FDA-Public Use
  Company Number: None

PATIENT
  Sex: Female
  Weight: 73.94 kg

DRUGS (5)
  1. PREDNISONE 20MG TABLETS [Suspect]
     Active Substance: PREDNISONE
     Indication: BRONCHITIS
     Dosage: 10 2 TABLETS DAILY BY MOUTH
     Route: 048
     Dates: start: 20160221, end: 20160224
  2. OMEGA 3 FISH OIL [Concomitant]
     Active Substance: FISH OIL\OMEGA-3 FATTY ACIDS
  3. DHA [Concomitant]
     Active Substance: DIETARY SUPPLEMENT
  4. LEVOTHYROXIN [Concomitant]
     Active Substance: LEVOTHYROXINE
  5. EPA [Concomitant]

REACTIONS (5)
  - Impaired work ability [None]
  - Visual impairment [None]
  - Muscular weakness [None]
  - Gait disturbance [None]
  - Asthenia [None]

NARRATIVE: CASE EVENT DATE: 20160324
